FAERS Safety Report 20684973 (Version 1)
Quarter: 2022Q2

REPORT INFORMATION
  Report Type: Spontaneous
  Country: US (occurrence: None)
  Receive Date: 20220405
  Receipt Date: 20220405
  Transmission Date: 20220721
  Serious: No
  Sender: FDA-Public Use
  Company Number: None

PATIENT
  Age: 88 Year
  Sex: Male

DRUGS (1)
  1. DEFERASIROX [Suspect]
     Active Substance: DEFERASIROX
     Dosage: FREQUENCY : DAILY;?
     Route: 048

REACTIONS (5)
  - Diarrhoea [None]
  - Asthenia [None]
  - Hypotension [None]
  - Oxygen saturation decreased [None]
  - Heart rate decreased [None]

NARRATIVE: CASE EVENT DATE: 20220331
